FAERS Safety Report 14996579 (Version 1)
Quarter: 2018Q2

REPORT INFORMATION
  Report Type: Report from Study
  Country: GB (occurrence: DE)
  Receive Date: 20180611
  Receipt Date: 20180611
  Transmission Date: 20180711
  Serious: Yes (Life-Threatening)
  Sender: FDA-Public Use
  Company Number: DE-TEVA-2018-DE-904053

PATIENT
  Age: 75 Year
  Sex: Female
  Weight: 69 kg

DRUGS (56)
  1. PHENHYDAN INJECTION [Suspect]
     Active Substance: PHENYTOIN
     Indication: PROPHYLAXIS
     Dosage: 1 DOSAGE FORMS DAILY;
     Dates: start: 19981120, end: 19981120
  2. CODEINE [Suspect]
     Active Substance: CODEINE
     Indication: COUGH
     Dosage: 15 GTT DAILY;
     Route: 048
     Dates: start: 19981204
  3. SILOMAT (CLOBUTINOL HYDROCHLORIDE) [Suspect]
     Active Substance: CLOBUTINOL HYDROCHLORIDE
     Indication: COUGH
     Route: 048
     Dates: start: 19981124, end: 19981124
  4. PHENHYDAN TABLETS [Suspect]
     Active Substance: PHENYTOIN
     Indication: PROPHYLAXIS
     Route: 048
     Dates: start: 19981116, end: 19981119
  5. NITRAZEPAM [Suspect]
     Active Substance: NITRAZEPAM
     Indication: SEDATION
     Dosage: 5 MILLIGRAM DAILY; IRREGULAR DOSAGE FROM 19 NOV 98 TO 27 NOV 98.
     Route: 048
     Dates: start: 19981119, end: 19981207
  6. ARISTOCHOL KONZENTRAT [Concomitant]
     Active Substance: DIETARY SUPPLEMENT\HERBALS
     Indication: CONSTIPATION
     Route: 048
     Dates: start: 19981116
  7. GASTROZEPIN [Concomitant]
     Active Substance: PIRENZEPINE HYDROCHLORIDE
     Indication: ULCER
     Dosage: 1 DOSAGE FORMS DAILY;
     Route: 042
     Dates: start: 19981120, end: 19981120
  8. RANITIDIN [Concomitant]
     Active Substance: RANITIDINE HYDROCHLORIDE
     Indication: ULCER
     Dosage: 1 DOSAGE FORMS DAILY;
     Route: 048
     Dates: start: 19981116
  9. SILOMAT (CLOBUTINOL HYDROCHLORIDE) [Suspect]
     Active Substance: CLOBUTINOL HYDROCHLORIDE
     Indication: COUGH
     Route: 048
     Dates: start: 19981128, end: 19981128
  10. SILOMAT (CLOBUTINOL HYDROCHLORIDE) [Suspect]
     Active Substance: CLOBUTINOL HYDROCHLORIDE
     Indication: COUGH
     Route: 048
     Dates: start: 19981130, end: 19981205
  11. SOSTRIL [Concomitant]
     Active Substance: RANITIDINE HYDROCHLORIDE
     Indication: ULCER
     Dosage: 1 DOSAGE FORMS DAILY;
     Dates: start: 19981120, end: 19981120
  12. DILZEM RETARD [Concomitant]
     Active Substance: DILTIAZEM
     Indication: CORONARY ARTERY DISEASE
     Dosage: 1 DOSAGE FORMS DAILY;
     Route: 048
  13. HEPARIN [Concomitant]
     Active Substance: HEPARIN SODIUM
     Indication: THROMBOSIS PROPHYLAXIS
     Dosage: 7500 IU (INTERNATIONAL UNIT) DAILY;
     Route: 058
     Dates: start: 19981116
  14. EBRANTIL [Concomitant]
     Active Substance: URAPIDIL
     Indication: HYPERTENSION
     Route: 042
     Dates: start: 19981120, end: 19981120
  15. ADALAT [Concomitant]
     Active Substance: NIFEDIPINE
     Indication: HYPERTENSION
     Dosage: 1 DOSAGE FORMS DAILY;
     Route: 048
     Dates: start: 19981121, end: 19981121
  16. DIAZEPAM. [Suspect]
     Active Substance: DIAZEPAM
     Indication: SEDATION
     Route: 048
     Dates: start: 19981119, end: 19981119
  17. PHENAEMAL [Suspect]
     Active Substance: PHENOBARBITAL
     Indication: PROPHYLAXIS
     Dosage: .1 MILLIGRAM DAILY;
     Route: 048
     Dates: start: 19981001, end: 19981115
  18. HEPARIN [Concomitant]
     Active Substance: HEPARIN SODIUM
     Indication: THROMBOSIS PROPHYLAXIS
     Dosage: 10000 IU (INTERNATIONAL UNIT) DAILY;
     Dates: start: 19981120, end: 19981122
  19. ISOFLURAN [Concomitant]
     Active Substance: ISOFLURANE
     Indication: GENERAL ANAESTHESIA
     Route: 055
     Dates: start: 19981120, end: 19981120
  20. DOPAMIN [Concomitant]
     Active Substance: DOPAMINE HYDROCHLORIDE
     Dosage: 200 MILLIGRAM DAILY;
     Route: 042
     Dates: start: 19981120, end: 19981120
  21. ATROPIN [Concomitant]
     Active Substance: ATROPINE
     Indication: ARRHYTHMIA
     Route: 042
     Dates: start: 19981120, end: 19981120
  22. DEXAMETHASON [Concomitant]
     Active Substance: DEXAMETHASONE
     Indication: PROPHYLAXIS
     Route: 048
     Dates: start: 19981116, end: 19981128
  23. MEVINACOR [Concomitant]
     Active Substance: LOVASTATIN
     Indication: HYPERCHOLESTEROLAEMIA
     Dosage: .5 DOSAGE FORMS DAILY;
     Route: 048
     Dates: start: 19981116
  24. NOVALGIN (METAMIZOLE SODIUM) [Suspect]
     Active Substance: METAMIZOLE SODIUM
     Indication: PYREXIA
     Route: 048
     Dates: start: 19981202, end: 19981202
  25. FLUIMUCIL [Concomitant]
     Active Substance: ACETYLCYSTEINE
     Indication: PRODUCT USED FOR UNKNOWN INDICATION
     Dosage: 1 DOSAGE FORMS DAILY;
     Dates: start: 19981120, end: 19981122
  26. FENTANYL JANSSEN [Concomitant]
     Active Substance: FENTANYL
     Indication: GENERAL ANAESTHESIA
     Route: 042
     Dates: start: 19981120, end: 19981120
  27. PASPERTIN [Concomitant]
     Indication: NAUSEA
     Route: 048
     Dates: start: 19981119, end: 19981119
  28. GLUCOSE 5% [Concomitant]
     Active Substance: DEXTROSE
     Indication: FLUID REPLACEMENT
     Route: 042
     Dates: start: 19981120, end: 19981122
  29. DORMICUM (ORAL) [Suspect]
     Active Substance: MIDAZOLAM MALEATE
     Indication: SEDATION
     Route: 048
     Dates: start: 19981119, end: 19981119
  30. ARISTOCHOL KONZENTRAT [Concomitant]
     Active Substance: DIETARY SUPPLEMENT\HERBALS
     Indication: CONSTIPATION
     Route: 048
     Dates: start: 19981116
  31. DEPOT-H-INSULIN [Concomitant]
     Indication: HYPERGLYCAEMIA
     Route: 058
     Dates: start: 19981120, end: 19981120
  32. ARISTOCHOL KONZENTRAT [Concomitant]
     Active Substance: DIETARY SUPPLEMENT\HERBALS
     Indication: CONSTIPATION
     Route: 048
     Dates: start: 19981116
  33. PANCURONIUM [Concomitant]
     Active Substance: PANCURONIUM
     Indication: GENERAL ANAESTHESIA
     Route: 042
     Dates: start: 19981120, end: 19981120
  34. DEHYDROBENZPERIDOL [Concomitant]
     Active Substance: DROPERIDOL
     Indication: GENERAL ANAESTHESIA
     Route: 042
     Dates: start: 19981120, end: 19981120
  35. ACC BRAUSETABLETTEN [Suspect]
     Active Substance: ACETYLCYSTEINE
     Indication: PRODUCT USED FOR UNKNOWN INDICATION
     Dosage: 1 DOSAGE FORMS DAILY;
     Route: 048
     Dates: start: 19981202
  36. VESDIL [Suspect]
     Active Substance: RAMIPRIL
     Indication: HYPERTENSION
     Dosage: 2.5 MILLIGRAM DAILY;
     Route: 048
     Dates: start: 19981122
  37. BEPANTHEN (DEXPANTHENOL) [Suspect]
     Active Substance: DEXPANTHENOL
     Indication: DRY MOUTH
     Dosage: 1 DOSAGE FORMS DAILY; IRREGULAR DOSAGE.
     Route: 048
     Dates: start: 19981121, end: 19981203
  38. ARISTOCHOL KONZENTRAT [Concomitant]
     Active Substance: DIETARY SUPPLEMENT\HERBALS
     Indication: CONSTIPATION
     Route: 048
     Dates: start: 19981116
  39. KALIUMCHLORID [Concomitant]
     Indication: HYPOKALAEMIA
     Dosage: 20 MILLIMOL DAILY;
     Route: 065
     Dates: start: 19981120, end: 19981122
  40. KALINOR-BRAUSETABLETTEN [Concomitant]
     Active Substance: POTASSIUM CARBONATE\POTASSIUM CITRATE
     Indication: HYPOKALAEMIA
     Dosage: 1 DOSAGE FORMS DAILY;
     Route: 048
     Dates: start: 19981121, end: 19981122
  41. PASPERTIN [Concomitant]
     Indication: NAUSEA
     Dosage: 1 DOSAGE FORMS DAILY;
     Route: 042
     Dates: start: 19981120, end: 19981120
  42. ARISTOCHOL KONZENTRAT [Concomitant]
     Active Substance: DIETARY SUPPLEMENT\HERBALS
     Indication: CONSTIPATION
     Route: 048
     Dates: start: 19981116
  43. NATRIUMCHLORID [Concomitant]
     Active Substance: SODIUM CHLORIDE
     Indication: FLUID REPLACEMENT
     Route: 042
     Dates: start: 19981120, end: 19981122
  44. SUFENTA [Concomitant]
     Active Substance: SUFENTANIL CITRATE
     Indication: GENERAL ANAESTHESIA
     Route: 042
     Dates: start: 19981120, end: 19981120
  45. RANITIDIN [Concomitant]
     Active Substance: RANITIDINE HYDROCHLORIDE
     Indication: ULCER
     Route: 042
     Dates: start: 19981120, end: 19981121
  46. ASPIRIN. [Suspect]
     Active Substance: ASPIRIN
     Indication: CORONARY ARTERY DISEASE
     Dosage: 100 MILLIGRAM DAILY;
     Route: 048
     Dates: end: 19981116
  47. DORMICUM (INJ) [Suspect]
     Active Substance: MIDAZOLAM HYDROCHLORIDE
     Indication: SEDATION
     Route: 042
     Dates: start: 19981120, end: 19981120
  48. THIOPENTAL [Concomitant]
     Active Substance: THIOPENTAL
     Indication: GENERAL ANAESTHESIA
     Dates: start: 19981120, end: 19981120
  49. FORTECORTIN [Concomitant]
     Active Substance: DEXAMETHASONE
     Indication: PROPHYLAXIS
     Dosage: 4 MILLIGRAM DAILY;
     Route: 042
     Dates: start: 19981120, end: 19981121
  50. KALINOR-BRAUSETABLETTEN [Concomitant]
     Active Substance: POTASSIUM CARBONATE\POTASSIUM CITRATE
     Indication: HYPOKALAEMIA
     Dosage: 1 DOSAGE FORMS DAILY;
     Route: 048
     Dates: start: 19981121, end: 19981122
  51. RINGER^S INJECTION [Concomitant]
     Indication: FLUID REPLACEMENT
     Route: 042
     Dates: start: 19981120, end: 19981120
  52. MAGALDRATE [Suspect]
     Active Substance: MAGALDRATE
     Indication: ULCER
     Dosage: 1 DOSAGE FORMS DAILY; IRREGULAR DOSAGE.
     Route: 048
     Dates: start: 19981128
  53. BEPANTHEN (DEXPANTHENOL) [Suspect]
     Active Substance: DEXPANTHENOL
     Indication: DRY MOUTH
     Dosage: 1 DOSAGE FORMS DAILY;
     Route: 048
     Dates: start: 19981207
  54. VESDIL [Suspect]
     Active Substance: RAMIPRIL
     Indication: HYPERTENSION
     Dosage: 2.5 MILLIGRAM DAILY;
     Route: 048
     Dates: end: 19981119
  55. PHENHYDAN TABLETS [Suspect]
     Active Substance: PHENYTOIN
     Indication: PROPHYLAXIS
     Route: 048
     Dates: start: 19981121
  56. KALINOR-BRAUSETABLETTEN [Concomitant]
     Active Substance: POTASSIUM CARBONATE\POTASSIUM CITRATE
     Indication: HYPOKALAEMIA
     Dosage: 1 DOSAGE FORMS DAILY;
     Route: 048
     Dates: start: 19981121, end: 19981122

REACTIONS (1)
  - Stevens-Johnson syndrome [Recovering/Resolving]

NARRATIVE: CASE EVENT DATE: 19981207
